FAERS Safety Report 19509203 (Version 1)
Quarter: 2021Q3

REPORT INFORMATION
  Report Type: Spontaneous
  Country: GR (occurrence: GR)
  Receive Date: 20210709
  Receipt Date: 20210709
  Transmission Date: 20211014
  Serious: Yes (Other)
  Sender: FDA-Public Use
  Company Number: GR-EMD SERONO-E2B_90084131

PATIENT
  Age: 15 Year
  Sex: Female
  Weight: 51 kg

DRUGS (3)
  1. SAIZEN [Suspect]
     Active Substance: SOMATROPIN
     Indication: BLOOD GROWTH HORMONE INCREASED
     Dosage: 9MG PER WEEK (LAST DOSE, IT CHANGES OVER THE YEAR)
     Route: 058
     Dates: start: 20160102, end: 20200521
  2. T4 [Concomitant]
     Active Substance: LEVOTHYROXINE
     Indication: AUTOIMMUNE THYROIDITIS
     Dates: start: 20151020, end: 20210323
  3. T4 [Concomitant]
     Active Substance: LEVOTHYROXINE
     Indication: AUTOIMMUNE THYROIDITIS
     Dates: start: 20151020, end: 20210323

REACTIONS (1)
  - Teratoma [Recovered/Resolved]

NARRATIVE: CASE EVENT DATE: 20210111
